FAERS Safety Report 6191789-2 (Version None)
Quarter: 2009Q2

REPORT INFORMATION
  Report Type: 
  Country: None (occurrence: None)
  Receive Date: 20090515
  Receipt Date: 20090515
  Transmission Date: 20091009
  Serious: Yes (Death, Other)
  Sender: FDA-Public Use
  Company Number: PHHY2009NZ16515

PATIENT
  Sex: Male

DRUGS (6)
  1. CLOZARIL [Suspect]
     Indication: SCHIZOPHRENIA
     Dosage: UNK
     Route: 048
     Dates: start: 19980108
  2. CLOZARIL [Suspect]
     Indication: PSYCHOTIC DISORDER
     Dosage: 125 MG DAILY
     Route: 048
  3. SINEMET [Concomitant]
     Dosage: HALF, SIX TIMES A DAY
  4. LISURIDE [Concomitant]
     Dosage: 0.2 MG, QDS
  5. TOLCAPONE [Concomitant]
     Dosage: 100 MG, TID
  6. TEMAZEPAM [Concomitant]
     Dosage: 100 MG, QHS

REACTIONS (9)
  - ACTIVITIES OF DAILY LIVING IMPAIRED [None]
  - ASTHENIA [None]
  - BLOOD TEST ABNORMAL [None]
  - COLD SWEAT [None]
  - HAEMATEMESIS [None]
  - INFECTION [None]
  - PNEUMONIA ASPIRATION [None]
  - SMALL INTESTINAL OBSTRUCTION [None]
  - WEIGHT DECREASED [None]
